FAERS Safety Report 19205813 (Version 2)
Quarter: 2021Q3

REPORT INFORMATION
  Report Type: Spontaneous
  Country: US (occurrence: US)
  Receive Date: 20210503
  Receipt Date: 20210908
  Transmission Date: 20211014
  Serious: No
  Sender: FDA-Public Use
  Company Number: US-FARMAPROD-202103-0395

PATIENT
  Age: 63 Year
  Sex: Female

DRUGS (13)
  1. ERYTHROMYCIN. [Concomitant]
     Active Substance: ERYTHROMYCIN
  2. ALOE VERA [Concomitant]
     Active Substance: ALOE VERA LEAF
  3. MELATONIN [Concomitant]
     Active Substance: MELATONIN
  4. LINZESS [Concomitant]
     Active Substance: LINACLOTIDE
  5. LYRICA [Concomitant]
     Active Substance: PREGABALIN
  6. INDOMETHACIN. [Concomitant]
     Active Substance: INDOMETHACIN
  7. SYSTANE GEL [Concomitant]
     Dosage: 0.3%?0.4%
  8. METHYLPREDNISOLONE. [Concomitant]
     Active Substance: METHYLPREDNISOLONE
  9. OXERVATE [Suspect]
     Active Substance: CENEGERMIN-BKBJ
     Indication: NEUROTROPHIC KERATOPATHY
     Route: 047
     Dates: start: 20210311, end: 20210506
  10. OXERVATE [Suspect]
     Active Substance: CENEGERMIN-BKBJ
     Route: 047
     Dates: start: 20210518
  11. XIIDRA [Concomitant]
     Active Substance: LIFITEGRAST
     Dosage: DROPERETTE
  12. CEVIMELINE HCL [Concomitant]
     Active Substance: CEVIMELINE HYDROCHLORIDE
  13. DOXYCYCLINE HYCLATE. [Concomitant]
     Active Substance: DOXYCYCLINE HYCLATE

REACTIONS (17)
  - Eye pain [Unknown]
  - Constipation [Unknown]
  - Ocular hyperaemia [Unknown]
  - Eyelid pain [Unknown]
  - Nausea [Unknown]
  - Eye irritation [Unknown]
  - Stomatitis [Unknown]
  - Foreign body sensation in eyes [Unknown]
  - Headache [Unknown]
  - Eye discharge [Unknown]
  - Dry eye [Not Recovered/Not Resolved]
  - Vision blurred [Unknown]
  - Eyelid irritation [Not Recovered/Not Resolved]
  - Tongue erythema [Unknown]
  - Eye irritation [Unknown]
  - Tongue ulceration [Unknown]
  - Lacrimation increased [Unknown]

NARRATIVE: CASE EVENT DATE: 20210313
